FAERS Safety Report 8201609-X (Version None)
Quarter: 2012Q1

REPORT INFORMATION
  Report Type: 
  Country: None (occurrence: None)
  Receive Date: 20120312
  Receipt Date: 20120301
  Transmission Date: 20120608
  Serious: Yes (Life-Threatening, Disabling, Other)
  Sender: FDA-Public Use
  Company Number: GB-TEVA-321873ISR

PATIENT
  Age: 67 Year
  Sex: Female

DRUGS (2)
  1. ENBREL [Suspect]
     Indication: RHEUMATOID ARTHRITIS
     Dosage: 50 MG, WEEKLY
     Dates: start: 20100719, end: 20110518
  2. METHOTREXATE [Suspect]
     Dosage: UNKNOWN
     Dates: end: 20100101

REACTIONS (2)
  - RECTAL CANCER [None]
  - PNEUMONIA [None]
